FAERS Safety Report 6434751-4 (Version None)
Quarter: 2009Q4

REPORT INFORMATION
  Report Type: 
  Country: None (occurrence: None)
  Receive Date: 20091110
  Receipt Date: 20091103
  Transmission Date: 20100525
  Serious: Yes (Other)
  Sender: FDA-Public Use
  Company Number: BR-PFIZER INC-2009222395

PATIENT
  Age: 74 Year
  Sex: Female
  Weight: 76 kg

DRUGS (9)
  1. LIPITOR [Suspect]
     Indication: BLOOD CHOLESTEROL INCREASED
     Dosage: UNK MG, 1X/DAY
     Route: 048
  2. SIMVASTATIN [Suspect]
     Dosage: 10 MG, UNK
  3. SIMVASTATIN [Suspect]
     Dosage: 20 MG, UNK
  4. SIMVASTATIN [Suspect]
     Dosage: 40 MG, UNK
  5. SYNTHROID [Concomitant]
     Indication: HYPOTHYROIDISM
     Dosage: UNK
  6. PURAN T4 [Concomitant]
     Indication: HYPOTHYROIDISM
     Dosage: UNK
  7. CALCIUM [Concomitant]
     Indication: OSTEOPOROSIS
     Dosage: UNK
  8. ALENDRONATE SODIUM [Concomitant]
     Indication: OSTEOPOROSIS
     Dosage: UNK
  9. VITAMIN D [Concomitant]
     Indication: OSTEOPOROSIS
     Dosage: UNK

REACTIONS (4)
  - ABDOMINAL PAIN UPPER [None]
  - BLOOD CHOLESTEROL ABNORMAL [None]
  - GALLBLADDER OPERATION [None]
  - MYALGIA [None]
